FAERS Safety Report 16748834 (Version 1)
Quarter: 2019Q3

REPORT INFORMATION
  Report Type: Spontaneous
  Country: US (occurrence: US)
  Receive Date: 20190828
  Receipt Date: 20190828
  Transmission Date: 20191005
  Serious: Yes (Hospitalization)
  Sender: FDA-Public Use
  Company Number: US-ITALFARMACO SPA-2073742

PATIENT
  Age: 40 Year
  Sex: Male

DRUGS (6)
  1. RADICAVA [Concomitant]
     Active Substance: EDARAVONE
  2. BACLOFEN. [Concomitant]
     Active Substance: BACLOFEN
  3. CITALOPRAM [Concomitant]
     Active Substance: CITALOPRAM HYDROBROMIDE
  4. DIAZEPAM. [Concomitant]
     Active Substance: DIAZEPAM
  5. TIGLUTIK [Suspect]
     Active Substance: RILUZOLE
     Indication: AMYOTROPHIC LATERAL SCLEROSIS
     Route: 048
  6. OXYCODONE HYDROCHLORIDE. [Concomitant]
     Active Substance: OXYCODONE HYDROCHLORIDE

REACTIONS (1)
  - Pneumonia [Unknown]
